FAERS Safety Report 5128305-X (Version None)
Quarter: 2006Q4

REPORT INFORMATION
  Report Type: 
  Country: None (occurrence: None)
  Receive Date: 20061011
  Receipt Date: 20061002
  Transmission Date: 20070319
  Serious: Yes (Hospitalization, Other)
  Sender: FDA-Public Use
  Company Number: 2006113978

PATIENT
  Age: 23 Year
  Sex: Female

DRUGS (3)
  1. ZOLOFT [Suspect]
     Dosage: 50 MG (1 IN 1 D), ORAL
     Route: 048
     Dates: end: 20060901
  2. ALPRAZOLAM [Suspect]
     Dosage: 0.4 MG (1 IN 1 D), ORAL
     Route: 048
     Dates: end: 20060901
  3. HALCION [Suspect]
     Dosage: 0.125 MG (1 IN 1 D), ORAL
     Route: 048
     Dates: end: 20060901

REACTIONS (2)
  - DEPRESSED LEVEL OF CONSCIOUSNESS [None]
  - MULTIPLE DRUG OVERDOSE INTENTIONAL [None]
